FAERS Safety Report 5587112-4 (Version None)
Quarter: 2008Q1

REPORT INFORMATION
  Report Type: 
  Country: None (occurrence: None)
  Receive Date: 20080110
  Receipt Date: 20080103
  Transmission Date: 20080703
  Serious: Yes (Hospitalization)
  Sender: FDA-Public Use
  Company Number: B0501812A

PATIENT
  Age: 59 Year
  Sex: Female

DRUGS (2)
  1. LAPATINIB [Suspect]
     Dosage: 1250MG PER DAY
     Route: 048
     Dates: start: 20070801
  2. CAPECITABINE [Suspect]
     Dosage: 2000MG PER DAY
     Route: 048
     Dates: start: 20070801

REACTIONS (1)
  - FEBRILE INFECTION [None]
